FAERS Safety Report 13151759 (Version 1)
Quarter: 2017Q1

REPORT INFORMATION
  Report Type: Spontaneous
  Country: AT (occurrence: AT)
  Receive Date: 20170125
  Receipt Date: 20170125
  Transmission Date: 20170428
  Serious: Yes (Death)
  Sender: FDA-Public Use
  Company Number: PHHY2017AT006900

PATIENT
  Age: 60 Year
  Sex: Female

DRUGS (3)
  1. OLANZAPINE. [Suspect]
     Active Substance: OLANZAPINE
     Indication: ANTIDEPRESSANT THERAPY
     Route: 065
  2. TRIMIPRAMINE [Interacting]
     Active Substance: TRIMIPRAMINE
     Indication: ANTIDEPRESSANT THERAPY
     Route: 065
  3. CLOMIPRAMINE [Interacting]
     Active Substance: CLOMIPRAMINE
     Indication: ANTIDEPRESSANT THERAPY
     Route: 065

REACTIONS (5)
  - Coma [Fatal]
  - Cardiac failure [Fatal]
  - Drug interaction [Fatal]
  - Myocardial ischaemia [Fatal]
  - Atrioventricular block [Fatal]
